FAERS Safety Report 7154543-0 (Version None)
Quarter: 2010Q4

REPORT INFORMATION
  Report Type: 
  Country: None (occurrence: None)
  Receive Date: 20101214
  Receipt Date: 20091104
  Transmission Date: 20110411
  Serious: Yes (Hospitalization)
  Sender: FDA-Public Use
  Company Number: US-AMGEN-KDL371813

PATIENT

DRUGS (10)
  1. ENBREL [Suspect]
     Indication: RHEUMATOID ARTHRITIS
     Dosage: 50 MG, QWK
     Route: 058
     Dates: start: 20080501
  2. METHOTREXATE [Suspect]
     Dosage: 25 MG, QD
     Route: 048
     Dates: start: 20070601
  3. METAXALONE [Concomitant]
     Dosage: 800 MG, QD
     Route: 048
  4. FENOFIBRATE [Concomitant]
     Dosage: 145 MG, QD
     Route: 048
  5. AMITRIPTYLINE HYDROCHLORIDE [Concomitant]
     Dosage: 100 MG, QD
     Route: 048
  6. NADOLOL [Concomitant]
     Dosage: 80 MG, QD
  7. POTASSIUM CHLORIDE [Concomitant]
     Dosage: 10 MEQ, QD
     Route: 048
  8. AMLODIPINE + VALSARTAN [Concomitant]
     Dosage: 60 MG, QD
     Route: 048
  9. TORSEMIDE [Concomitant]
     Dosage: 10 MG, QD
     Route: 048
  10. ZOLPIDEM TARTRATE [Concomitant]

REACTIONS (2)
  - ABSCESS NECK [None]
  - NAUSEA [None]
